FAERS Safety Report 17139022 (Version 1)
Quarter: 2019Q4

REPORT INFORMATION
  Report Type: Spontaneous
  Country: US (occurrence: US)
  Receive Date: 20191210
  Receipt Date: 20191210
  Transmission Date: 20200122
  Serious: Yes (Other)
  Sender: FDA-Public Use
  Company Number: None

PATIENT
  Age: 56 Year
  Sex: Female
  Weight: 95.4 kg

DRUGS (1)
  1. REMICADE [Suspect]
     Active Substance: INFLIXIMAB
     Indication: HIDRADENITIS
     Dosage: ?          OTHER FREQUENCY:EVERY 6 WEEKS;?
     Route: 041

REACTIONS (6)
  - Pallor [None]
  - Hypotension [None]
  - Oxygen saturation decreased [None]
  - Infusion related reaction [None]
  - Nausea [None]
  - Hyperhidrosis [None]

NARRATIVE: CASE EVENT DATE: 20191207
